FAERS Safety Report 25700045 (Version 1)
Quarter: 2025Q3

REPORT INFORMATION
  Report Type: Spontaneous
  Country: US (occurrence: None)
  Receive Date: 20250818
  Receipt Date: 20250818
  Transmission Date: 20251021
  Serious: Yes (Other)
  Sender: FDA-CTU
  Company Number: None

PATIENT
  Age: 32 Year
  Sex: Female
  Weight: 52.2 kg

DRUGS (1)
  1. SUMATRIPTAN [Suspect]
     Active Substance: SUMATRIPTAN
     Indication: Migraine
     Route: 048
     Dates: start: 20210501, end: 20210510

REACTIONS (2)
  - Migraine [None]
  - Paraesthesia [None]

NARRATIVE: CASE EVENT DATE: 20210501
